FAERS Safety Report 17225929 (Version 2)
Quarter: 2020Q1

REPORT INFORMATION
  Report Type: Spontaneous
  Country: US (occurrence: US)
  Receive Date: 20200102
  Receipt Date: 20200203
  Transmission Date: 20200409
  Serious: No
  Sender: FDA-Public Use
  Company Number: US-THERATECHNOLOGIES INC.-2019-THE-IBA-000057

PATIENT
  Age: 61 Year
  Sex: Male

DRUGS (2)
  1. TROGARZO [Suspect]
     Active Substance: IBALIZUMAB-UIYK
     Indication: PRODUCT USED FOR UNKNOWN INDICATION
     Dosage: UNK
     Route: 042
     Dates: start: 201806
  2. TROGARZO [Suspect]
     Active Substance: IBALIZUMAB-UIYK
     Dosage: 800 MG, SINGLE
     Route: 042
     Dates: start: 20191209

REACTIONS (2)
  - Product dose omission [Unknown]
  - Medication error [Unknown]

NARRATIVE: CASE EVENT DATE: 20191204
